FAERS Safety Report 6994537-9 (Version None)
Quarter: 2010Q3

REPORT INFORMATION
  Report Type: 
  Country: None (occurrence: None)
  Receive Date: 20100917
  Receipt Date: 20100908
  Transmission Date: 20110219
  Serious: Yes (Other)
  Sender: FDA-Public Use
  Company Number: US-AMGEN-KDL437060

PATIENT
  Sex: Female

DRUGS (2)
  1. ENBREL [Suspect]
     Indication: RHEUMATOID ARTHRITIS
     Route: 058
     Dates: start: 20010801
  2. SIMPONI [Concomitant]

REACTIONS (4)
  - ARTHRALGIA [None]
  - DRY EYE [None]
  - INCORRECT DOSE ADMINISTERED [None]
  - PHOTOPHOBIA [None]
